FAERS Safety Report 6475769-5 (Version None)
Quarter: 2009Q4

REPORT INFORMATION
  Report Type: 
  Country: None (occurrence: None)
  Receive Date: 20091119
  Receipt Date: 20091016
  Transmission Date: 20100525
  Serious: Yes (Other)
  Sender: FDA-Public Use
  Company Number: 2009SP030857

PATIENT
  Age: 26 Year
  Sex: Female
  Weight: 126.5536 kg

DRUGS (1)
  1. IMPLANON [Suspect]
     Indication: CONTRACEPTION
     Dosage: 1 DF;
     Dates: start: 20090423

REACTIONS (6)
  - AMENORRHOEA [None]
  - BACK PAIN [None]
  - BREAST PAIN [None]
  - IMPLANT SITE PAIN [None]
  - MOOD SWINGS [None]
  - SUICIDAL IDEATION [None]
